FAERS Safety Report 10486398 (Version 1)
Quarter: 2014Q4

REPORT INFORMATION
  Report Type: Spontaneous
  Country: CA (occurrence: CA)
  Receive Date: 20141001
  Receipt Date: 20141001
  Transmission Date: 20150528
  Serious: Yes (Other)
  Sender: FDA-Public Use
  Company Number: CA-ROCHE-1468493

PATIENT
  Sex: Female

DRUGS (7)
  1. XOLAIR [Suspect]
     Active Substance: OMALIZUMAB
     Indication: ASTHMA
     Route: 058
     Dates: start: 20110819
  2. SINGULAIR [Concomitant]
     Active Substance: MONTELUKAST SODIUM
  3. QVAR [Concomitant]
     Active Substance: BECLOMETHASONE DIPROPIONATE
  4. PREDNISONE. [Concomitant]
     Active Substance: PREDNISONE
  5. RHINOCORT [Concomitant]
     Active Substance: BUDESONIDE
  6. SYMBICORT [Concomitant]
     Active Substance: BUDESONIDE\FORMOTEROL FUMARATE DIHYDRATE
  7. SPIRIVA [Concomitant]
     Active Substance: TIOTROPIUM BROMIDE MONOHYDRATE

REACTIONS (7)
  - Dyspnoea [Unknown]
  - Wheezing [Unknown]
  - Hypersensitivity [Unknown]
  - Productive cough [Unknown]
  - Feeling abnormal [Unknown]
  - Asthma [Unknown]
  - Nasopharyngitis [Unknown]
